FAERS Safety Report 9735842 (Version 2)
Quarter: 2015Q3

REPORT INFORMATION
  Report Type: Spontaneous
  Country: US (occurrence: US)
  Receive Date: 20131206
  Receipt Date: 20150804
  Transmission Date: 20151125
  Serious: No
  Sender: FDA-Public Use
  Company Number: US-GILEAD-2009-0024029

PATIENT
  Age: 66 Year
  Sex: Female
  Weight: 81.65 kg

DRUGS (12)
  1. COMBIVENT [Concomitant]
     Active Substance: ALBUTEROL SULFATE\IPRATROPIUM BROMIDE
  2. SINGULAIR [Concomitant]
     Active Substance: MONTELUKAST SODIUM
  3. ASPIRIN. [Concomitant]
     Active Substance: ASPIRIN
  4. RANITIDINE [Concomitant]
     Active Substance: RANITIDINE\RANITIDINE HYDROCHLORIDE
  5. TYLENOL [Concomitant]
     Active Substance: ACETAMINOPHEN
  6. SIMVASTATIN. [Concomitant]
     Active Substance: SIMVASTATIN
  7. PROAIR HFA [Concomitant]
     Active Substance: ALBUTEROL SULFATE
  8. OMEPRAZOLE. [Concomitant]
     Active Substance: OMEPRAZOLE
  9. LETAIRIS [Suspect]
     Active Substance: AMBRISENTAN
     Indication: PULMONARY ARTERIAL HYPERTENSION
     Route: 048
     Dates: start: 20090709
  10. FUROSEMIDE. [Concomitant]
     Active Substance: FUROSEMIDE
  11. FLOVENT [Concomitant]
     Active Substance: FLUTICASONE PROPIONATE
  12. CITRUCEL [Concomitant]
     Active Substance: METHYLCELLULOSE (4000 MPA.S)

REACTIONS (4)
  - Headache [Recovered/Resolved]
  - Palpitations [Recovered/Resolved]
  - Dyspnoea [Unknown]
  - Cough [Unknown]
